FAERS Safety Report 6821670-4 (Version None)
Quarter: 2010Q3

REPORT INFORMATION
  Report Type: 
  Country: None (occurrence: None)
  Receive Date: 20100707
  Receipt Date: 20090330
  Transmission Date: 20110219
  Serious: No
  Sender: FDA-Public Use
  Company Number: US-PFIZER INC-2009193303

PATIENT
  Sex: Female
  Weight: 97.068 kg

DRUGS (3)
  1. ZOLOFT [Suspect]
     Indication: PANIC DISORDER WITH AGORAPHOBIA
     Dates: start: 20080525, end: 20090301
  2. ADVAIR DISKUS 100/50 [Concomitant]
     Dosage: UNK
  3. ALBUTEROL [Concomitant]
     Dosage: UNK

REACTIONS (1)
  - VOMITING [None]
